FAERS Safety Report 7519287-1 (Version None)
Quarter: 2011Q2

REPORT INFORMATION
  Report Type: 
  Country: None (occurrence: None)
  Receive Date: 20110602
  Receipt Date: 20110518
  Transmission Date: 20111010
  Serious: Yes (Hospitalization)
  Sender: FDA-Public Use
  Company Number: US-JNJFOC-20110508950

PATIENT
  Sex: Female

DRUGS (12)
  1. ATENOLOL [Concomitant]
     Route: 048
  2. PREDNISONE [Concomitant]
  3. INFLIXIMAB, RECOMBINANT [Suspect]
     Route: 042
     Dates: start: 20070202
  4. ASACOL [Concomitant]
     Route: 048
  5. E VITAMIN [Concomitant]
     Dosage: 400 IU PER DAY
  6. INFLIXIMAB, RECOMBINANT [Suspect]
     Indication: COLITIS ULCERATIVE
     Route: 042
  7. HYZAAR [Concomitant]
     Dosage: DOSE 100/25 MG
     Route: 048
  8. ACETAMINOPHEN [Concomitant]
     Dosage: 1 OR 2 AS NECESSARY
  9. ASPIRIN [Concomitant]
     Route: 048
  10. GLUCOSAMINE [Concomitant]
  11. MULTIPLE VITAMINS [Concomitant]
  12. ACETAMINOPHEN [Concomitant]

REACTIONS (4)
  - HYPOKALAEMIA [None]
  - RENAL FAILURE ACUTE [None]
  - URINARY TRACT INFECTION [None]
  - GASTROENTERITIS VIRAL [None]
